FAERS Safety Report 6597668-0 (Version None)
Quarter: 2010Q1

REPORT INFORMATION
  Report Type: 
  Country: None (occurrence: None)
  Receive Date: 20100223
  Receipt Date: 20100212
  Transmission Date: 20100710
  Serious: Yes (Hospitalization, Other)
  Sender: FDA-Public Use
  Company Number: JP-SANOFI-AVENTIS-2009SA011226

PATIENT
  Age: 67 Year
  Sex: Male
  Weight: 77 kg

DRUGS (34)
  1. OXALIPLATIN [Suspect]
     Indication: RECTAL CANCER
     Route: 041
     Dates: start: 20081029, end: 20081029
  2. OXALIPLATIN [Suspect]
     Route: 041
     Dates: start: 20090126, end: 20090126
  3. UROLOGICALS [Concomitant]
     Indication: BENIGN PROSTATIC HYPERPLASIA
     Route: 048
     Dates: start: 20081016
  4. CALCIUM LEVOFOLINATE [Suspect]
     Indication: RECTAL CANCER
     Route: 041
     Dates: start: 20081029, end: 20081029
  5. CALCIUM LEVOFOLINATE [Suspect]
     Route: 041
     Dates: start: 20090126, end: 20090126
  6. CALCIUM LEVOFOLINATE [Suspect]
     Route: 041
     Dates: start: 20090309, end: 20090309
  7. CALCIUM LEVOFOLINATE [Suspect]
     Route: 041
     Dates: start: 20090323, end: 20090427
  8. 5-FU [Suspect]
     Indication: RECTAL CANCER
     Route: 040
     Dates: start: 20081029, end: 20081029
  9. 5-FU [Suspect]
     Route: 041
     Dates: start: 20081029, end: 20081030
  10. 5-FU [Suspect]
     Route: 040
     Dates: start: 20090126, end: 20090126
  11. 5-FU [Suspect]
     Route: 041
     Dates: start: 20090126, end: 20090127
  12. 5-FU [Suspect]
     Route: 040
     Dates: start: 20090309, end: 20090427
  13. 5-FU [Suspect]
     Route: 041
     Dates: start: 20090309, end: 20090427
  14. KYTRIL [Concomitant]
     Indication: PREMEDICATION
     Route: 041
     Dates: start: 20081029, end: 20090427
  15. DEXAMETHASONE SODIUM PHOSPHATE [Concomitant]
     Indication: PREMEDICATION
     Route: 041
     Dates: start: 20081029, end: 20090427
  16. BIO THREE [Concomitant]
     Route: 048
     Dates: start: 20080911
  17. FAMOTIDINE [Concomitant]
     Indication: GASTRITIS PROPHYLAXIS
     Route: 048
     Dates: start: 20080912
  18. LOXOPROFEN SODIUM [Concomitant]
     Indication: PAIN
     Route: 048
     Dates: start: 20080915, end: 20091127
  19. REBAMIPIDE [Concomitant]
     Indication: GASTRITIS PROPHYLAXIS
     Route: 048
     Dates: start: 20080915, end: 20091127
  20. MORPHINE SULFATE [Concomitant]
     Indication: PAIN
     Route: 048
     Dates: start: 20080916
  21. FUROSEMIDE [Concomitant]
     Indication: HYPERTENSION
     Route: 048
     Dates: start: 20080920, end: 20090323
  22. SENNOSIDE A [Concomitant]
     Route: 048
     Dates: start: 20080920
  23. MAGNESIUM OXIDE [Concomitant]
     Route: 048
     Dates: start: 20080920, end: 20090821
  24. BROTIZOLAM [Concomitant]
     Route: 048
     Dates: start: 20090301
  25. CLOTIAZEPAM [Concomitant]
     Indication: ANXIETY
     Route: 048
     Dates: start: 20090301
  26. RISPERIDONE [Concomitant]
     Indication: ANXIETY
     Route: 048
     Dates: start: 20090501, end: 20090507
  27. BIPERIDEN HYDROCHLORIDE [Concomitant]
     Indication: TREMOR
     Route: 048
     Dates: start: 20090501, end: 20090507
  28. OLANZAPINE [Concomitant]
     Indication: ANXIETY
     Route: 048
     Dates: start: 20090501, end: 20090507
  29. HARNAL [Concomitant]
     Indication: BENIGN PROSTATIC HYPERPLASIA
     Route: 048
     Dates: start: 20080903, end: 20080924
  30. FLIVAS [Concomitant]
     Indication: BENIGN PROSTATIC HYPERPLASIA
     Route: 048
     Dates: start: 20080925, end: 20081015
  31. ROHYPNOL [Concomitant]
     Indication: INSOMNIA
     Route: 048
     Dates: start: 20090406, end: 20090503
  32. DORAL [Concomitant]
     Indication: INSOMNIA
     Route: 048
     Dates: start: 20090406, end: 20090503
  33. ZYPREXA [Concomitant]
     Indication: ANXIETY
     Route: 048
     Dates: start: 20090501, end: 20090507
  34. LODOPIN [Concomitant]
     Indication: ANXIETY
     Route: 048
     Dates: start: 20090525, end: 20090918

REACTIONS (2)
  - MANIA [None]
  - NEUROPATHY PERIPHERAL [None]
